FAERS Safety Report 5059057-X (Version None)
Quarter: 2006Q3

REPORT INFORMATION
  Report Type: 
  Country: None (occurrence: None)
  Receive Date: 20060719
  Receipt Date: 20060704
  Transmission Date: 20061208
  Serious: Yes (Other)
  Sender: FDA-Public Use
  Company Number: DEU-2006-0002332

PATIENT
  Age: 54 Year
  Sex: Female

DRUGS (2)
  1. MORPHINE SULFATE [Suspect]
     Indication: PAIN
     Dosage: 15.8 MG DAILY INTRATHECAL
     Route: 037
  2. BUPIVACAINE [Concomitant]

REACTIONS (1)
  - INJECTION SITE MASS [None]
